APPROVED DRUG PRODUCT: DOXYCYCLINE HYCLATE
Active Ingredient: DOXYCYCLINE HYCLATE
Strength: EQ 100MG BASE
Dosage Form/Route: CAPSULE;ORAL
Application: A062396 | Product #001 | TE Code: AB
Applicant: HIKMA INTERNATIONAL PHARMACEUTICALS LLC
Approved: May 7, 1984 | RLD: No | RS: Yes | Type: RX